FAERS Safety Report 4927471-6 (Version None)
Quarter: 2006Q1

REPORT INFORMATION
  Report Type: 
  Country: None (occurrence: None)
  Receive Date: 20060213
  Receipt Date: 20060131
  Transmission Date: 20060701
  Serious: Yes (Other)
  Sender: FDA-Public Use
  Company Number: FRWYE190429NOV05

PATIENT
  Age: 5 Year
  Sex: Male

DRUGS (5)
  1. REFACTO [Suspect]
     Indication: FACTOR VIII DEFICIENCY
     Dosage: PROPHYLAXIS: 1000 IU TOTAL WEEKLY, IN 3 DIVIDED DOSES (250-250-500) INTRAVENOUS; SEE IMAGE
     Route: 042
     Dates: start: 20020308, end: 20030603
  2. REFACTO [Suspect]
     Indication: FACTOR VIII DEFICIENCY
     Dosage: PROPHYLAXIS: 1000 IU TOTAL WEEKLY, IN 3 DIVIDED DOSES (250-250-500) INTRAVENOUS; SEE IMAGE
     Route: 042
     Dates: start: 20030604, end: 20040301
  3. REFACTO [Suspect]
     Indication: FACTOR VIII DEFICIENCY
     Dosage: PROPHYLAXIS: 1000 IU TOTAL WEEKLY, IN 3 DIVIDED DOSES (250-250-500) INTRAVENOUS; SEE IMAGE
     Route: 042
     Dates: start: 20040301, end: 20050401
  4. REFACTO [Suspect]
     Indication: FACTOR VIII DEFICIENCY
     Dosage: PROPHYLAXIS: 1000 IU TOTAL WEEKLY, IN 3 DIVIDED DOSES (250-250-500) INTRAVENOUS; SEE IMAGE
     Route: 042
     Dates: start: 20050401, end: 20051205
  5. REFACTO [Suspect]
     Indication: FACTOR VIII DEFICIENCY
     Dosage: PROPHYLAXIS: 1000 IU TOTAL WEEKLY, IN 3 DIVIDED DOSES (250-250-500) INTRAVENOUS; SEE IMAGE
     Route: 042
     Dates: start: 20051206

REACTIONS (4)
  - COAGULATION FACTOR VIII LEVEL DECREASED [None]
  - DRUG EFFECT DECREASED [None]
  - HAEMARTHROSIS [None]
  - WEIGHT INCREASED [None]
